FAERS Safety Report 16848718 (Version 1)
Quarter: 2019Q4

REPORT INFORMATION
  Report Type: Spontaneous
  Country: US (occurrence: US)
  Receive Date: 20190924
  Receipt Date: 20190924
  Transmission Date: 20200122
  Serious: Yes (Life-Threatening, Hospitalization)
  Sender: FDA-Public Use
  Company Number: None

PATIENT
  Age: 36 Year
  Sex: Male

DRUGS (1)
  1. FLOLAN PH 12 DILUENT [Suspect]
     Active Substance: GLYCINE\MANNITOL\SODIUM CHLORIDE

REACTIONS (1)
  - Device occlusion [None]

NARRATIVE: CASE EVENT DATE: 20190711
